FAERS Safety Report 9232729 (Version 1)
Quarter: 2013Q2

REPORT INFORMATION
  Report Type: Spontaneous
  Country: US (occurrence: None)
  Receive Date: 20130415
  Receipt Date: 20130415
  Transmission Date: 20140414
  Serious: Yes (Other)
  Sender: FDA-Public Use
  Company Number: None

PATIENT
  Sex: Male
  Weight: 74.84 kg

DRUGS (1)
  1. CLINDAMYCIN [Suspect]
     Dates: start: 20130118, end: 20130125

REACTIONS (2)
  - Chest discomfort [None]
  - Cardiac flutter [None]
